FAERS Safety Report 17351970 (Version 5)
Quarter: 2021Q1

REPORT INFORMATION
  Report Type: Report from Study
  Country: JP (occurrence: JP)
  Receive Date: 20200130
  Receipt Date: 20210323
  Transmission Date: 20210419
  Serious: Yes (Death, Hospitalization)
  Sender: FDA-Public Use
  Company Number: JP-EISAI MEDICAL RESEARCH-EC-2020-069197

PATIENT
  Age: 78 Year
  Sex: Male
  Weight: 58 kg

DRUGS (6)
  1. LENVIMA [Suspect]
     Active Substance: LENVATINIB
     Route: 048
     Dates: start: 20190208, end: 20190716
  2. CELECOX [Concomitant]
     Active Substance: CELECOXIB
     Indication: FIBULA FRACTURE
     Route: 048
     Dates: start: 20190718
  3. LENVIMA [Suspect]
     Active Substance: LENVATINIB
     Route: 048
     Dates: start: 20190730, end: 20190828
  4. LENVIMA [Suspect]
     Active Substance: LENVATINIB
     Route: 048
     Dates: start: 20190919, end: 20191121
  5. LENVIMA [Suspect]
     Active Substance: LENVATINIB
     Indication: HEPATOCELLULAR CARCINOMA
     Route: 048
     Dates: start: 20181113, end: 20190207
  6. LENVIMA [Suspect]
     Active Substance: LENVATINIB
     Dosage: 5 DAYS ON/2 DAYS OFF SCHEDULE
     Route: 048
     Dates: start: 20191122, end: 20200102

REACTIONS (3)
  - Oesophageal varices haemorrhage [Recovering/Resolving]
  - Fibula fracture [Recovered/Resolved]
  - Malignant neoplasm progression [Fatal]

NARRATIVE: CASE EVENT DATE: 20190714
